FAERS Safety Report 14266908 (Version 2)
Quarter: 2019Q4

REPORT INFORMATION
  Report Type: Spontaneous
  Country: CA (occurrence: CA)
  Receive Date: 20171211
  Receipt Date: 20191206
  Transmission Date: 20200122
  Serious: Yes (Life-Threatening)
  Sender: FDA-Public Use
  Company Number: CA-ROCHE-2032904

PATIENT
  Age: 45 Year
  Sex: Female

DRUGS (137)
  1. ANTITHYMOCYTE IMMUNOGLOBULIN (RABBIT) [Suspect]
     Active Substance: LAPINE T-LYMPHOCYTE IMMUNE GLOBULIN
     Indication: TRANSPLANT
     Route: 005
  2. ANTITHYMOCYTE IMMUNOGLOBULIN (RABBIT) [Suspect]
     Active Substance: LAPINE T-LYMPHOCYTE IMMUNE GLOBULIN
     Route: 065
  3. ANTITHYMOCYTE IMMUNOGLOBULIN (RABBIT) [Suspect]
     Active Substance: LAPINE T-LYMPHOCYTE IMMUNE GLOBULIN
     Route: 065
  4. DACLIZUMAB [Suspect]
     Active Substance: DACLIZUMAB
     Route: 042
  5. ENBREL [Suspect]
     Active Substance: ETANERCEPT
     Route: 058
  6. ENBREL [Suspect]
     Active Substance: ETANERCEPT
     Route: 058
  7. ENBREL [Suspect]
     Active Substance: ETANERCEPT
     Route: 058
  8. NEORAL [Suspect]
     Active Substance: CYCLOSPORINE
     Indication: TRANSPLANT
     Route: 065
  9. PROGRAF [Suspect]
     Active Substance: TACROLIMUS
     Indication: TRANSPLANT
     Route: 048
  10. PROGRAF [Suspect]
     Active Substance: TACROLIMUS
     Route: 048
  11. PROGRAF [Suspect]
     Active Substance: TACROLIMUS
     Route: 048
  12. PROGRAF [Suspect]
     Active Substance: TACROLIMUS
     Route: 048
  13. TACROLIMUS. [Suspect]
     Active Substance: TACROLIMUS
     Route: 048
  14. TACROLIMUS. [Suspect]
     Active Substance: TACROLIMUS
     Route: 065
  15. EQUINE THYMOCYTE IMMUNE GLOBULIN [Suspect]
     Active Substance: EQUINE THYMOCYTE IMMUNE GLOBULIN
     Route: 065
  16. ANTITHYMOCYTE IMMUNOGLOBULIN (RABBIT) [Suspect]
     Active Substance: LAPINE T-LYMPHOCYTE IMMUNE GLOBULIN
     Route: 005
  17. DACLIZUMAB [Suspect]
     Active Substance: DACLIZUMAB
     Indication: TRANSPLANT
     Route: 042
  18. DACLIZUMAB [Suspect]
     Active Substance: DACLIZUMAB
     Route: 042
  19. ENBREL [Suspect]
     Active Substance: ETANERCEPT
     Route: 058
  20. ENBREL [Suspect]
     Active Substance: ETANERCEPT
     Route: 058
  21. ENBREL [Suspect]
     Active Substance: ETANERCEPT
     Route: 058
  22. ENBREL [Suspect]
     Active Substance: ETANERCEPT
     Route: 058
  23. ENBREL [Suspect]
     Active Substance: ETANERCEPT
     Route: 058
  24. PROGRAF [Suspect]
     Active Substance: TACROLIMUS
     Route: 048
  25. PROGRAF [Suspect]
     Active Substance: TACROLIMUS
     Route: 048
  26. PROGRAF [Suspect]
     Active Substance: TACROLIMUS
     Route: 048
  27. PROGRAF [Suspect]
     Active Substance: TACROLIMUS
     Route: 048
  28. REMICADE [Suspect]
     Active Substance: INFLIXIMAB
     Indication: PRODUCT USED FOR UNKNOWN INDICATION
     Route: 042
  29. SULFASALAZINE. [Suspect]
     Active Substance: SULFASALAZINE
     Indication: RHEUMATOID ARTHRITIS
     Route: 065
  30. TACROLIMUS. [Suspect]
     Active Substance: TACROLIMUS
     Route: 065
  31. TACROLIMUS. [Suspect]
     Active Substance: TACROLIMUS
     Route: 048
  32. TACROLIMUS. [Suspect]
     Active Substance: TACROLIMUS
     Route: 048
  33. ANTITHYMOCYTE IMMUNOGLOBULIN (HORSE) [Suspect]
     Active Substance: EQUINE THYMOCYTE IMMUNE GLOBULIN
     Route: 005
  34. EQUINE THYMOCYTE IMMUNE GLOBULIN [Suspect]
     Active Substance: EQUINE THYMOCYTE IMMUNE GLOBULIN
     Indication: PRODUCT USED FOR UNKNOWN INDICATION
     Route: 065
  35. DACLIZUMAB [Suspect]
     Active Substance: DACLIZUMAB
     Route: 042
  36. DACLIZUMAB [Suspect]
     Active Substance: DACLIZUMAB
     Route: 042
  37. DACLIZUMAB [Suspect]
     Active Substance: DACLIZUMAB
     Route: 042
  38. ENBREL [Suspect]
     Active Substance: ETANERCEPT
     Route: 058
  39. ENBREL [Suspect]
     Active Substance: ETANERCEPT
     Route: 048
  40. ENBREL [Suspect]
     Active Substance: ETANERCEPT
     Route: 058
  41. ENBREL [Suspect]
     Active Substance: ETANERCEPT
     Route: 058
  42. ENBREL [Suspect]
     Active Substance: ETANERCEPT
     Route: 058
  43. ENBREL [Suspect]
     Active Substance: ETANERCEPT
     Route: 058
  44. PROGRAF [Suspect]
     Active Substance: TACROLIMUS
     Route: 048
  45. PROGRAF [Suspect]
     Active Substance: TACROLIMUS
     Route: 048
  46. PROGRAF [Suspect]
     Active Substance: TACROLIMUS
     Route: 048
  47. PROGRAF [Suspect]
     Active Substance: TACROLIMUS
     Route: 048
  48. PROGRAF [Suspect]
     Active Substance: TACROLIMUS
     Route: 048
  49. PROGRAF [Suspect]
     Active Substance: TACROLIMUS
     Route: 048
  50. PROGRAF [Suspect]
     Active Substance: TACROLIMUS
     Route: 048
  51. RAPAMUNE [Suspect]
     Active Substance: SIROLIMUS
     Indication: TRANSPLANT
     Route: 065
  52. TACROLIMUS. [Suspect]
     Active Substance: TACROLIMUS
     Route: 048
  53. CELLCEPT [Suspect]
     Active Substance: MYCOPHENOLATE MOFETIL\MYCOPHENOLATE MOFETIL HYDROCHLORIDE
     Route: 048
  54. CELLCEPT [Suspect]
     Active Substance: MYCOPHENOLATE MOFETIL\MYCOPHENOLATE MOFETIL HYDROCHLORIDE
     Route: 048
  55. CELLCEPT [Suspect]
     Active Substance: MYCOPHENOLATE MOFETIL\MYCOPHENOLATE MOFETIL HYDROCHLORIDE
     Route: 048
  56. ANTITHYMOCYTE IMMUNOGLOBULIN [Suspect]
     Active Substance: THYMOCYTE IMMUNE GLOBULIN NOS
     Indication: TRANSPLANT
     Route: 065
  57. ANTITHYMOCYTE IMMUNOGLOBULIN (RABBIT) [Suspect]
     Active Substance: LAPINE T-LYMPHOCYTE IMMUNE GLOBULIN
     Route: 005
  58. ENBREL [Suspect]
     Active Substance: ETANERCEPT
     Route: 058
  59. ENBREL [Suspect]
     Active Substance: ETANERCEPT
     Route: 058
  60. ENBREL [Suspect]
     Active Substance: ETANERCEPT
     Route: 058
  61. PROGRAF [Suspect]
     Active Substance: TACROLIMUS
     Route: 048
  62. PROGRAF [Suspect]
     Active Substance: TACROLIMUS
     Route: 048
  63. PROGRAF [Suspect]
     Active Substance: TACROLIMUS
     Route: 048
  64. PROGRAF [Suspect]
     Active Substance: TACROLIMUS
     Route: 048
  65. TACROLIMUS. [Suspect]
     Active Substance: TACROLIMUS
     Indication: PRODUCT USED FOR UNKNOWN INDICATION
     Route: 048
  66. TACROLIMUS. [Suspect]
     Active Substance: TACROLIMUS
     Route: 048
  67. CELLCEPT [Suspect]
     Active Substance: MYCOPHENOLATE MOFETIL\MYCOPHENOLATE MOFETIL HYDROCHLORIDE
     Route: 048
  68. CELLCEPT [Suspect]
     Active Substance: MYCOPHENOLATE MOFETIL\MYCOPHENOLATE MOFETIL HYDROCHLORIDE
     Route: 048
  69. CELLCEPT [Suspect]
     Active Substance: MYCOPHENOLATE MOFETIL\MYCOPHENOLATE MOFETIL HYDROCHLORIDE
     Indication: TRANSPLANT
     Route: 048
  70. CELLCEPT [Suspect]
     Active Substance: MYCOPHENOLATE MOFETIL\MYCOPHENOLATE MOFETIL HYDROCHLORIDE
     Route: 048
  71. ANTITHYMOCYTE IMMUNOGLOBULIN [Suspect]
     Active Substance: THYMOCYTE IMMUNE GLOBULIN NOS
     Route: 065
  72. ANTITHYMOCYTE IMMUNOGLOBULIN [Suspect]
     Active Substance: THYMOCYTE IMMUNE GLOBULIN NOS
     Route: 065
  73. DACLIZUMAB [Suspect]
     Active Substance: DACLIZUMAB
     Indication: PRODUCT USED FOR UNKNOWN INDICATION
     Route: 042
  74. DACLIZUMAB [Suspect]
     Active Substance: DACLIZUMAB
     Route: 065
  75. ENBREL [Suspect]
     Active Substance: ETANERCEPT
     Route: 058
  76. ENBREL [Suspect]
     Active Substance: ETANERCEPT
     Route: 058
  77. ENBREL [Suspect]
     Active Substance: ETANERCEPT
     Route: 058
  78. ENBREL [Suspect]
     Active Substance: ETANERCEPT
     Route: 058
  79. ENBREL [Suspect]
     Active Substance: ETANERCEPT
     Route: 048
  80. ENBREL [Suspect]
     Active Substance: ETANERCEPT
     Route: 048
  81. PROGRAF [Suspect]
     Active Substance: TACROLIMUS
     Route: 048
  82. PROGRAF [Suspect]
     Active Substance: TACROLIMUS
     Route: 048
  83. PROGRAF [Suspect]
     Active Substance: TACROLIMUS
     Route: 048
  84. PROGRAF [Suspect]
     Active Substance: TACROLIMUS
     Route: 048
  85. PROGRAF [Suspect]
     Active Substance: TACROLIMUS
     Route: 048
  86. TACROLIMUS. [Suspect]
     Active Substance: TACROLIMUS
     Route: 065
  87. CELLCEPT [Suspect]
     Active Substance: MYCOPHENOLATE MOFETIL\MYCOPHENOLATE MOFETIL HYDROCHLORIDE
     Indication: TRANSPLANT
     Route: 048
  88. CELLCEPT [Suspect]
     Active Substance: MYCOPHENOLATE MOFETIL\MYCOPHENOLATE MOFETIL HYDROCHLORIDE
     Route: 048
  89. CELLCEPT [Suspect]
     Active Substance: MYCOPHENOLATE MOFETIL\MYCOPHENOLATE MOFETIL HYDROCHLORIDE
     Route: 048
  90. ANTITHYMOCYTE IMMUNOGLOBULIN (HORSE) [Suspect]
     Active Substance: EQUINE THYMOCYTE IMMUNE GLOBULIN
     Indication: TRANSPLANT
     Route: 005
  91. ANTITHYMOCYTE IMMUNOGLOBULIN (RABBIT) [Suspect]
     Active Substance: LAPINE T-LYMPHOCYTE IMMUNE GLOBULIN
     Route: 005
  92. ANTITHYMOCYTE IMMUNOGLOBULIN (RABBIT) [Suspect]
     Active Substance: LAPINE T-LYMPHOCYTE IMMUNE GLOBULIN
     Route: 065
  93. PROGRAF [Suspect]
     Active Substance: TACROLIMUS
     Route: 048
  94. PROGRAF [Suspect]
     Active Substance: TACROLIMUS
     Route: 048
  95. PROGRAF [Suspect]
     Active Substance: TACROLIMUS
     Route: 048
  96. PROGRAF [Suspect]
     Active Substance: TACROLIMUS
     Route: 048
  97. PROGRAF [Suspect]
     Active Substance: TACROLIMUS
     Route: 048
  98. PROGRAF [Suspect]
     Active Substance: TACROLIMUS
     Route: 048
  99. PROGRAF [Suspect]
     Active Substance: TACROLIMUS
     Route: 048
  100. PROGRAF [Suspect]
     Active Substance: TACROLIMUS
     Route: 048
  101. PROGRAF [Suspect]
     Active Substance: TACROLIMUS
     Route: 048
  102. PROGRAF [Suspect]
     Active Substance: TACROLIMUS
     Route: 048
  103. PROGRAF [Suspect]
     Active Substance: TACROLIMUS
     Route: 048
  104. TACROLIMUS. [Suspect]
     Active Substance: TACROLIMUS
     Route: 048
  105. CELLCEPT [Suspect]
     Active Substance: MYCOPHENOLATE MOFETIL\MYCOPHENOLATE MOFETIL HYDROCHLORIDE
     Route: 048
  106. GLICLAZIDE [Suspect]
     Active Substance: GLICLAZIDE
     Indication: PRODUCT USED FOR UNKNOWN INDICATION
     Route: 042
  107. ANTITHYMOCYTE IMMUNOGLOBULIN (RABBIT) [Suspect]
     Active Substance: LAPINE T-LYMPHOCYTE IMMUNE GLOBULIN
     Route: 058
  108. ANTITHYMOCYTE IMMUNOGLOBULIN (RABBIT) [Suspect]
     Active Substance: LAPINE T-LYMPHOCYTE IMMUNE GLOBULIN
     Route: 005
  109. DACLIZUMAB [Suspect]
     Active Substance: DACLIZUMAB
     Route: 042
  110. ENBREL [Suspect]
     Active Substance: ETANERCEPT
     Route: 058
  111. ENBREL [Suspect]
     Active Substance: ETANERCEPT
     Route: 058
  112. ENBREL [Suspect]
     Active Substance: ETANERCEPT
     Route: 058
  113. ENBREL [Suspect]
     Active Substance: ETANERCEPT
     Route: 058
  114. ENBREL [Suspect]
     Active Substance: ETANERCEPT
     Route: 058
  115. ENBREL [Suspect]
     Active Substance: ETANERCEPT
     Route: 058
  116. ENBREL [Suspect]
     Active Substance: ETANERCEPT
     Route: 058
  117. PROGRAF [Suspect]
     Active Substance: TACROLIMUS
     Route: 048
  118. PROGRAF [Suspect]
     Active Substance: TACROLIMUS
     Route: 048
  119. PROGRAF [Suspect]
     Active Substance: TACROLIMUS
     Route: 048
  120. PROGRAF [Suspect]
     Active Substance: TACROLIMUS
     Route: 048
  121. PROGRAF [Suspect]
     Active Substance: TACROLIMUS
     Route: 048
  122. PROGRAF [Suspect]
     Active Substance: TACROLIMUS
     Route: 048
  123. ANTITHYMOCYTE IMMUNOGLOBULIN (RABBIT) [Suspect]
     Active Substance: LAPINE T-LYMPHOCYTE IMMUNE GLOBULIN
     Route: 065
  124. DACLIZUMAB [Suspect]
     Active Substance: DACLIZUMAB
     Route: 042
  125. ENBREL [Suspect]
     Active Substance: ETANERCEPT
     Indication: PRODUCT USED FOR UNKNOWN INDICATION
     Route: 058
  126. ENBREL [Suspect]
     Active Substance: ETANERCEPT
     Route: 058
  127. ENBREL [Suspect]
     Active Substance: ETANERCEPT
     Route: 058
  128. PROGRAF [Suspect]
     Active Substance: TACROLIMUS
     Route: 048
  129. PROGRAF [Suspect]
     Active Substance: TACROLIMUS
     Route: 048
  130. PROGRAF [Suspect]
     Active Substance: TACROLIMUS
     Route: 048
  131. PROGRAF [Suspect]
     Active Substance: TACROLIMUS
     Route: 048
  132. PROGRAF [Suspect]
     Active Substance: TACROLIMUS
     Route: 048
  133. TACROLIMUS. [Suspect]
     Active Substance: TACROLIMUS
     Route: 065
  134. TACROLIMUS. [Suspect]
     Active Substance: TACROLIMUS
     Route: 065
  135. CELLCEPT [Suspect]
     Active Substance: MYCOPHENOLATE MOFETIL\MYCOPHENOLATE MOFETIL HYDROCHLORIDE
     Route: 048
  136. CELLCEPT [Suspect]
     Active Substance: MYCOPHENOLATE MOFETIL\MYCOPHENOLATE MOFETIL HYDROCHLORIDE
     Indication: TRANSPLANT
     Route: 048
  137. ANTITHYMOCYTE IMMUNOGLOBULIN [Suspect]
     Active Substance: THYMOCYTE IMMUNE GLOBULIN NOS
     Route: 065

REACTIONS (14)
  - Loss of personal independence in daily activities [Not Recovered/Not Resolved]
  - Rheumatoid arthritis [Not Recovered/Not Resolved]
  - Alopecia [Not Recovered/Not Resolved]
  - Pain [Not Recovered/Not Resolved]
  - Transplant rejection [Not Recovered/Not Resolved]
  - Condition aggravated [Not Recovered/Not Resolved]
  - Sleep disorder due to general medical condition, insomnia type [Not Recovered/Not Resolved]
  - Ovarian cyst [Not Recovered/Not Resolved]
  - Pneumonia [Not Recovered/Not Resolved]
  - Transplant dysfunction [Not Recovered/Not Resolved]
  - Overdose [Unknown]
  - Product use issue [Unknown]
  - Acne [Not Recovered/Not Resolved]
  - Liver function test abnormal [Not Recovered/Not Resolved]
